FAERS Safety Report 26130103 (Version 1)
Quarter: 2025Q4

REPORT INFORMATION
  Report Type: Spontaneous
  Country: EU (occurrence: EU)
  Receive Date: 20251208
  Receipt Date: 20251208
  Transmission Date: 20260118
  Serious: Yes (Other)
  Sender: AMGEN
  Company Number: EU-AMGEN-POLSP2025239055

PATIENT
  Age: 64 Year
  Sex: Female

DRUGS (6)
  1. VECTIBIX [Suspect]
     Active Substance: PANITUMUMAB
     Indication: Colorectal cancer
     Dosage: 453.72 MILLIGRAM, Q2WK, 6 MILLIGRAM/KILOGRAM, Q2WK ((DZ1)-453.72 MG)
     Route: 040
     Dates: start: 20230910
  2. VECTIBIX [Suspect]
     Active Substance: PANITUMUMAB
     Dosage: 450 MILLIGRAM, Q2WK, 6 MG/KG IV (DZ1)
     Route: 040
     Dates: start: 20240218
  3. OXALIPLATIN [Concomitant]
     Active Substance: OXALIPLATIN
     Indication: Colorectal cancer
     Dosage: 162.03 MILLIGRAM, 85 MILLIGRAM/SQ. METER ((DZ1)-162.03 MG)
     Route: 040
     Dates: start: 20230910
  4. FLUOROURACIL [Concomitant]
     Active Substance: FLUOROURACIL
     Indication: Colorectal cancer
     Dosage: 756.76 MILLIGRAM, 400 MILLIGRAM/SQ. METER BOLUS (DZ1-DZ2)-756.76 MG
     Route: 040
     Dates: start: 20230910
  5. FLUOROURACIL [Concomitant]
     Active Substance: FLUOROURACIL
     Dosage: 1157.67 MILLIGRAM, 600 MILLIGRAM/SQ. METER (22-HOUR INFUSION (DZ1-DZ2)-1157.67 MG)
     Route: 040
  6. Levofolic [Concomitant]
     Indication: Colorectal cancer
     Dosage: 191.89 MILLIGRAM, 100 MILLIGRAM/SQ. METER (22-HOUR INFUSION (DZ1-DZ2)-191.89MG)
     Route: 040
     Dates: start: 20230910

REACTIONS (5)
  - Polyneuropathy [Not Recovered/Not Resolved]
  - Nail discolouration [Recovering/Resolving]
  - Pustule [Unknown]
  - Hepatomegaly [Unknown]
  - Rash [Unknown]

NARRATIVE: CASE EVENT DATE: 20240101
